FAERS Safety Report 9574997 (Version 3)
Quarter: 2014Q1

REPORT INFORMATION
  Report Type: Report from Study
  Country: US (occurrence: US)
  Receive Date: 20131001
  Receipt Date: 20140213
  Transmission Date: 20141002
  Serious: Yes (Congenital Anomaly)
  Sender: FDA-Public Use
  Company Number: US-MYLANLABS-2013S1021685

PATIENT
  Sex: 0

DRUGS (4)
  1. DARUNAVIR [Suspect]
     Route: 064
  2. ZIDOVUDINE [Suspect]
     Route: 064
  3. RITONAVIR [Suspect]
     Route: 064
  4. EMTRICITABINE W/TENOFOVIR DISOPROXIL FUMARATE [Suspect]
     Route: 064

REACTIONS (2)
  - Congenital foot malformation [Not Recovered/Not Resolved]
  - Foetal exposure during pregnancy [Recovered/Resolved]
